FAERS Safety Report 10504010 (Version 1)
Quarter: 2014Q4

REPORT INFORMATION
  Report Type: Spontaneous
  Country: US (occurrence: US)
  Receive Date: 20141008
  Receipt Date: 20141008
  Transmission Date: 20150528
  Serious: No
  Sender: FDA-Public Use
  Company Number: US-BEH-2013036766

PATIENT
  Sex: Female
  Weight: 75 kg

DRUGS (23)
  1. EPIPEN [Concomitant]
     Active Substance: EPINEPHRINE
  2. OMEGA 3-6-9 [Concomitant]
  3. MULTIVITAMIN [Concomitant]
     Active Substance: VITAMINS
  4. PRIVIGEN [Suspect]
     Active Substance: HUMAN IMMUNOGLOBULIN G
     Route: 042
  5. PRIVIGEN [Suspect]
     Active Substance: HUMAN IMMUNOGLOBULIN G
     Indication: HYPOGLOBULINAEMIA
     Route: 042
  6. HEPARIN [Concomitant]
     Active Substance: HEPARIN SODIUM
  7. VITAMIN D [Concomitant]
     Active Substance: CHOLECALCIFEROL
  8. WELCHOL [Concomitant]
     Active Substance: COLESEVELAM HYDROCHLORIDE
  9. ACETAMINOPHEN. [Concomitant]
     Active Substance: ACETAMINOPHEN
  10. ACCOLATE [Concomitant]
     Active Substance: ZAFIRLUKAST
  11. HYDROCODONE [Concomitant]
     Active Substance: HYDROCODONE
  12. ASTELIN [Concomitant]
     Active Substance: AZELASTINE HYDROCHLORIDE
  13. CYANACOBALAMIN [Concomitant]
  14. AMBIEN [Concomitant]
     Active Substance: ZOLPIDEM TARTRATE
  15. DIPHENHYDRAMINE [Concomitant]
     Active Substance: DIPHENHYDRAMINE
  16. SODIUM CHLORIDE. [Concomitant]
     Active Substance: SODIUM CHLORIDE
  17. COENZYME Q10 [Concomitant]
     Active Substance: UBIDECARENONE
  18. CARVEDILOL. [Concomitant]
     Active Substance: CARVEDILOL
  19. PREDNISONE. [Concomitant]
     Active Substance: PREDNISONE
  20. KLONOPIN [Concomitant]
     Active Substance: CLONAZEPAM
  21. NEXIUM [Concomitant]
     Active Substance: ESOMEPRAZOLE MAGNESIUM
  22. VITAMIN C [Concomitant]
     Active Substance: ASCORBIC ACID
  23. ALL OTHER NON-THERAPEUTIC PRODUCTS [Concomitant]
     Active Substance: UNSPECIFIED INGREDIENT

REACTIONS (1)
  - Sinusitis [Unknown]
